FAERS Safety Report 9663626 (Version 3)
Quarter: 2013Q4

REPORT INFORMATION
  Report Type: Spontaneous
  Country: US (occurrence: US)
  Receive Date: 20131101
  Receipt Date: 20131112
  Transmission Date: 20140711
  Serious: No
  Sender: FDA-Public Use
  Company Number: US-PFIZER INC-2013312424

PATIENT
  Age: 88 Year
  Sex: Female

DRUGS (1)
  1. AMIODARONE HCL [Suspect]
     Dosage: UNK
     Route: 065

REACTIONS (3)
  - Speech disorder [Unknown]
  - Trismus [Unknown]
  - Jaw disorder [Unknown]
